FAERS Safety Report 24127678 (Version 4)
Quarter: 2024Q3

REPORT INFORMATION
  Report Type: Report from Study
  Country: CA (occurrence: CA)
  Receive Date: 20240723
  Receipt Date: 20240916
  Transmission Date: 20241017
  Serious: Yes (Other)
  Sender: SANDOZ
  Company Number: CA-SANDOZ-SDZ2024CA039249

PATIENT
  Sex: Female

DRUGS (7)
  1. CORTISONE [Suspect]
     Active Substance: CORTISONE
     Dosage: 5 MG
     Route: 065
  2. CORTISONE [Suspect]
     Active Substance: CORTISONE
     Indication: Product used for unknown indication
     Dosage: 50 MG
     Route: 065
  3. HYRIMOZ [Suspect]
     Active Substance: ADALIMUMAB-ADAZ
     Indication: Crohn^s disease
     Dosage: 160 MG
     Route: 058
  4. HYRIMOZ [Suspect]
     Active Substance: ADALIMUMAB-ADAZ
     Dosage: 40 MG, Q2W (PREFILLED PEN)
     Route: 058
  5. HYRIMOZ [Suspect]
     Active Substance: ADALIMUMAB-ADAZ
     Indication: Colitis ulcerative
     Dosage: 80 MG
     Route: 058
  6. HYRIMOZ [Suspect]
     Active Substance: ADALIMUMAB-ADAZ
     Dosage: 160MG WEEK 0, 80MG WEEK 2 THEN 40MG Q2 WEEK;EVERY TWO WEEKS
     Route: 058
     Dates: start: 20240418
  7. LYRICA [Concomitant]
     Active Substance: PREGABALIN
     Indication: Product used for unknown indication
     Dosage: 175 MG
     Route: 065

REACTIONS (14)
  - Colitis ulcerative [Unknown]
  - Skin plaque [Unknown]
  - Neck pain [Unknown]
  - Dysarthria [Unknown]
  - Logorrhoea [Unknown]
  - Arthritis [Unknown]
  - Dry mouth [Unknown]
  - Polyp [Unknown]
  - Haemoptysis [Recovering/Resolving]
  - Back pain [Unknown]
  - Chest discomfort [Unknown]
  - Abdominal discomfort [Unknown]
  - Insomnia [Unknown]
  - Viral infection [Unknown]
